FAERS Safety Report 19846558 (Version 1)
Quarter: 2021Q3

REPORT INFORMATION
  Report Type: Spontaneous
  Country: US (occurrence: US)
  Receive Date: 20210916
  Receipt Date: 20210916
  Transmission Date: 20211014
  Serious: Yes (Hospitalization)
  Sender: FDA-Public Use
  Company Number: None

PATIENT
  Age: 59 Year
  Sex: Male
  Weight: 64.3 kg

DRUGS (4)
  1. WELLBUTRIN SR [Concomitant]
     Active Substance: BUPROPION HYDROCHLORIDE
  2. HUMIRA [Suspect]
     Active Substance: ADALIMUMAB
  3. NICOTINE (NICODERM CQ) [Concomitant]
  4. PRILOSEC [Concomitant]
     Active Substance: OMEPRAZOLE MAGNESIUM

REACTIONS (5)
  - Vomiting [None]
  - Abdominal pain upper [None]
  - Nausea [None]
  - Inflammatory bowel disease [None]
  - Intestinal obstruction [None]

NARRATIVE: CASE EVENT DATE: 20191231
